FAERS Safety Report 10069878 (Version 2)
Quarter: 2014Q2

REPORT INFORMATION
  Report Type: Spontaneous
  Country: JP (occurrence: JP)
  Receive Date: 20140410
  Receipt Date: 20140530
  Transmission Date: 20141212
  Serious: Yes (Hospitalization, Other)
  Sender: FDA-Public Use
  Company Number: JP-009507513-1404JPN003664

PATIENT
  Age: 74 Year
  Sex: Female
  Weight: 47 kg

DRUGS (12)
  1. FOSAMAC TABLETS 35MG [Suspect]
     Indication: OSTEOPOROSIS
     Dosage: 35 MG, 1 WEEK; QW
     Route: 048
     Dates: start: 20030710, end: 20140402
  2. JANUVIA TABLETS 50MG [Concomitant]
     Dosage: TOTAL DAILY DOSE: 50 MG; QD
     Route: 048
     Dates: start: 20140124, end: 20140520
  3. LANSOPRAZOLE [Concomitant]
     Dosage: TOTAL DAILY DOSE: 15 MG, QD
     Route: 048
     Dates: start: 20140124, end: 20140520
  4. LIPITOR [Concomitant]
     Dosage: TOTAL DAILY DOSE: 10MG; QD
     Route: 048
     Dates: start: 20140124, end: 20140520
  5. PREDONINE [Concomitant]
     Dosage: TOTAL DAILY DOSE: 10 MG; QD
     Route: 048
     Dates: start: 20140124, end: 20140520
  6. BLOPRESS [Concomitant]
     Dosage: TOTAL DAILY DOSE: 12MG; TID
     Route: 048
     Dates: start: 20140124, end: 20140520
  7. IMURAN (AZATHIOPRINE) [Concomitant]
     Dosage: TOTAL DAILY DOSE: 50MG; QD
     Route: 048
     Dates: start: 20140124, end: 20140520
  8. MYSLEE [Concomitant]
     Dosage: TOTAL DAILY DOSE: 5 MG; QD
     Route: 048
     Dates: start: 20140124, end: 20140520
  9. ADALAT CR [Concomitant]
     Dosage: TOTAL DAILY DOSE: 40MG; BID
     Route: 048
     Dates: start: 20140124, end: 20140520
  10. METGLUCO [Concomitant]
     Dosage: TOTAL DAILY DOSE: 150MG; TID
     Route: 048
     Dates: start: 20140124, end: 20140520
  11. LYRICA [Concomitant]
     Dosage: TOTAL DAILY DOSE: 50MG; QD
     Route: 048
  12. OPALMON [Concomitant]
     Dosage: TOTAL DAILY DOSE: 15MCG; TID
     Route: 048
     Dates: start: 20130914, end: 20140402

REACTIONS (3)
  - Open reduction of fracture [Unknown]
  - Atypical femur fracture [Recovering/Resolving]
  - Fall [Unknown]
